FAERS Safety Report 18028606 (Version 1)
Quarter: 2020Q3

REPORT INFORMATION
  Report Type: Spontaneous
  Country: FR (occurrence: FR)
  Receive Date: 20200716
  Receipt Date: 20200716
  Transmission Date: 20201103
  Serious: Yes (Hospitalization)
  Sender: FDA-Public Use
  Company Number: FR-TEVA-2020-FR-1800185

PATIENT
  Age: 57 Year
  Sex: Female
  Weight: 95 kg

DRUGS (24)
  1. CEFEPIME [Suspect]
     Active Substance: CEFEPIME HYDROCHLORIDE
     Indication: ANTIBIOTIC THERAPY
     Dosage: 8 GRAM DAILY;
     Route: 042
     Dates: start: 20200506
  2. PARACETAMOL [Concomitant]
     Active Substance: ACETAMINOPHEN
     Dosage: 10 MG / ML, INJECTION OF 1000MG 3 PER DAY
     Route: 042
     Dates: start: 20200502
  3. NEFOPAM MEDISOL 20 MG/2 ML, SOLUTION INJECTABLE [Concomitant]
     Dosage: 80 MILLIGRAM DAILY;
     Route: 042
     Dates: start: 20200502
  4. OMEPRAZOLE. [Concomitant]
     Active Substance: OMEPRAZOLE
     Dosage: 20 MILLIGRAM DAILY; IN THE EVENING
     Route: 048
  5. LEVOTHYROX 100 MICROGRAMMES, COMPRIM? S?CABLE [Concomitant]
     Active Substance: LEVOTHYROXINE SODIUM
     Dosage: 1 TEASPOON IN THE MORNING
     Route: 048
  6. FOSAVANCE [Concomitant]
     Active Substance: ALENDRONATE SODIUM\CHOLECALCIFEROL
     Dosage: 1 TABLET OF 70MG PER WEEK
     Route: 048
  7. VENTOLINE [Concomitant]
     Active Substance: ALBUTEROL
     Dosage: 3 DOSAGE FORMS DAILY; 1 PUFF 3 TIMES A DAY
     Route: 055
     Dates: start: 20200502
  8. DAFLON [Concomitant]
     Dosage: ON DEMAND
     Route: 048
  9. LORMETAZEPAM ARROW 2 MG, COMPRIM? S?CABLE [Concomitant]
     Dosage: 1 TSP IN THE EVENING
     Route: 048
     Dates: start: 20200502
  10. EXFORGE [Concomitant]
     Active Substance: AMLODIPINE BESYLATE\VALSARTAN
     Dosage: 1 TEASPOON IN THE MORNING
     Route: 048
  11. TARDYFERON 80 MG, COMPRIM? ENROB? [Concomitant]
     Active Substance: FERROUS SULFATE
     Dosage: 2 CP / D
     Route: 048
  12. ATARAX [Concomitant]
     Active Substance: HYDROXYZINE HYDROCHLORIDE
     Dosage: ON DEMAND
     Route: 048
  13. DIAZEPAM TEVA 5 MG, COMPRIM? [Concomitant]
     Active Substance: DIAZEPAM
     Dosage: 1 TSP 3 TIMES A DAY
     Route: 048
     Dates: start: 20200502
  14. LAMALINE [Concomitant]
     Dosage: IF NECESSARY
     Route: 048
  15. NOCTAMIDE 2 MG, COMPRIM? S?CABLE [Concomitant]
     Active Substance: LORMETAZEPAM
     Dosage: 2 MILLIGRAM DAILY; IN THE EVENING
     Route: 048
  16. PREGABALINE MYLAN 100 MG, G?LULE [Concomitant]
     Dosage: 2 DOSAGE FORMS DAILY; 1 CAPSULE 2 TIMES A DAY
     Route: 048
     Dates: start: 20200502
  17. VANCOMYCINE [Suspect]
     Active Substance: VANCOMYCIN
     Indication: ANTIBIOTIC THERAPY
     Dosage: 2500 MILLIGRAM DAILY;
     Route: 042
     Dates: start: 20200506, end: 20200512
  18. SITAGLIPTINE [Concomitant]
     Active Substance: SITAGLIPTIN
     Dosage: 100 MILLIGRAM DAILY; IN THE MORNING
     Route: 048
     Dates: start: 20200502
  19. LUMIGAN [Concomitant]
     Active Substance: BIMATOPROST
     Dosage: 1 GTT DAILY; IN THE MORNING
     Route: 047
  20. TRULICITY [Concomitant]
     Active Substance: DULAGLUTIDE
     Dosage: 1 INJECTION PER WEEK. 1 DOSAGE FORM
     Route: 058
  21. ESIDREX [Concomitant]
     Active Substance: HYDROCHLOROTHIAZIDE
     Dosage: 1/2 TSP IN THE MORNING
     Route: 048
  22. MIANSERINE (CHLORHYDRATE DE) [Concomitant]
     Active Substance: MIANSERIN HYDROCHLORIDE
     Dosage: 60 MILLIGRAM DAILY; 1 TSP IN THE EVENING
     Route: 048
  23. METFORMINE [Concomitant]
     Active Substance: METFORMIN HYDROCHLORIDE
     Dosage: 1000 MILLIGRAM DAILY; 1 TSP IN THE EVENING
     Route: 048
  24. CACIT [Concomitant]
     Dosage: 2 TIMES PER DAY
     Route: 048

REACTIONS (1)
  - Hyperthermia [Recovered/Resolved]

NARRATIVE: CASE EVENT DATE: 20200507
